FAERS Safety Report 8847718 (Version 3)
Quarter: 2013Q2

REPORT INFORMATION
  Report Type: Report from Study
  Country: US (occurrence: US)
  Receive Date: 20121018
  Receipt Date: 20130529
  Transmission Date: 20140414
  Serious: Yes (Death)
  Sender: FDA-Public Use
  Company Number: US-BAXTER-2012BAX019615

PATIENT
  Age: 48 Year
  Sex: Female

DRUGS (2)
  1. ARALAST NP [Suspect]
     Indication: ALPHA-1 ANTI-TRYPSIN DEFICIENCY
     Route: 042
     Dates: start: 20090126, end: 200903
  2. ARALAST NP [Suspect]
     Route: 042
     Dates: start: 20090603, end: 20101217

REACTIONS (5)
  - Death [Fatal]
  - Cardiac disorder [Unknown]
  - Nausea [Unknown]
  - Vomiting [Unknown]
  - Sinusitis [Unknown]
